FAERS Safety Report 18821357 (Version 2)
Quarter: 2021Q2

REPORT INFORMATION
  Report Type: Spontaneous
  Country: JP (occurrence: JP)
  Receive Date: 20210201
  Receipt Date: 20210528
  Transmission Date: 20210717
  Serious: Yes (Other)
  Sender: FDA-Public Use
  Company Number: JP-PFIZER INC-2021068245

PATIENT
  Sex: Female

DRUGS (2)
  1. XELJANZ [Suspect]
     Active Substance: TOFACITINIB CITRATE
     Dosage: 5 MG, 1X/DAY
     Route: 048
  2. XELJANZ [Suspect]
     Active Substance: TOFACITINIB CITRATE
     Indication: CARPAL TUNNEL SYNDROME
     Dosage: 5 MG, 2X/DAY
     Route: 048

REACTIONS (22)
  - Arrhythmia [Unknown]
  - Palpitations [Unknown]
  - Tachycardia [Unknown]
  - Pain [Unknown]
  - Spinal pain [Unknown]
  - Musculoskeletal discomfort [Unknown]
  - Dry mouth [Unknown]
  - Oral papule [Unknown]
  - Pyrexia [Unknown]
  - Tongue disorder [Unknown]
  - Malaise [Unknown]
  - Nasal dryness [Unknown]
  - Intentional product misuse [Unknown]
  - Decreased appetite [Unknown]
  - Feeling abnormal [Unknown]
  - Off label use [Unknown]
  - Musculoskeletal stiffness [Unknown]
  - Matrix metalloproteinase-3 increased [Unknown]
  - C-reactive protein increased [Unknown]
  - Chest pain [Unknown]
  - Headache [Unknown]
  - Therapeutic response decreased [Unknown]
